FAERS Safety Report 6312531-8 (Version None)
Quarter: 2009Q3

REPORT INFORMATION
  Report Type: 
  Country: None (occurrence: None)
  Receive Date: 20090817
  Receipt Date: 20090807
  Transmission Date: 20100115
  Serious: Yes (Other)
  Sender: FDA-Public Use
  Company Number: CN-PFIZER INC-2009252680

PATIENT
  Age: 73 Year

DRUGS (3)
  1. GLIPIZIDE [Suspect]
     Indication: BLOOD GLUCOSE
  2. METFORMIN HCL [Suspect]
     Indication: BLOOD GLUCOSE
  3. GLIPIZIDE [Suspect]
     Indication: DIABETES MELLITUS
     Dosage: 5 MG, 1X/DAY
     Route: 048
     Dates: start: 20090807

REACTIONS (2)
  - BLOOD GLUCOSE INCREASED [None]
  - CEREBRAL ARTERY EMBOLISM [None]
